FAERS Safety Report 7325419-0 (Version None)
Quarter: 2011Q1

REPORT INFORMATION
  Report Type: 
  Country: None (occurrence: None)
  Receive Date: 20110302
  Receipt Date: 20110216
  Transmission Date: 20110831
  Serious: Yes (Other)
  Sender: FDA-Public Use
  Company Number: BR-US-EMD SERONO, INC.-7044334

PATIENT
  Sex: Female

DRUGS (2)
  1. PARACETAMOL [Concomitant]
  2. REBIF [Suspect]
     Indication: RELAPSING-REMITTING MULTIPLE SCLEROSIS
     Dates: start: 20090909

REACTIONS (26)
  - GAIT DISTURBANCE [None]
  - DIPLOPIA [None]
  - MUSCULAR WEAKNESS [None]
  - CYSTITIS [None]
  - PAIN IN EXTREMITY [None]
  - VISION BLURRED [None]
  - PARAESTHESIA [None]
  - PNEUMONIA [None]
  - BALANCE DISORDER [None]
  - MYALGIA [None]
  - SENSORY LOSS [None]
  - INJECTION SITE PAIN [None]
  - PYREXIA [None]
  - IRRITABILITY [None]
  - FATIGUE [None]
  - COGNITIVE DISORDER [None]
  - DYSPEPSIA [None]
  - VOMITING [None]
  - NAUSEA [None]
  - HEADACHE [None]
  - KIDNEY INFECTION [None]
  - URINARY TRACT INFECTION [None]
  - DECREASED APPETITE [None]
  - VISUAL IMPAIRMENT [None]
  - IMPATIENCE [None]
  - INJECTION SITE ERYTHEMA [None]
